FAERS Safety Report 12765166 (Version 1)
Quarter: 2016Q3

REPORT INFORMATION
  Report Type: Spontaneous
  Country: SE (occurrence: SE)
  Receive Date: 20160921
  Receipt Date: 20160921
  Transmission Date: 20161109
  Serious: Yes (Other)
  Sender: FDA-Public Use
  Company Number: SE-ASTRAZENECA-2016SE97864

PATIENT
  Age: 52 Year
  Sex: Female

DRUGS (10)
  1. SIMVASTATIN. [Concomitant]
     Active Substance: SIMVASTATIN
  2. OXIS [Concomitant]
     Active Substance: FORMOTEROL FUMARATE
  3. SYMBICORT [Suspect]
     Active Substance: BUDESONIDE\FORMOTEROL FUMARATE DIHYDRATE
     Indication: ASTHMA
     Dosage: 2 PUFFTWO TIMES A DAY
     Route: 055
     Dates: start: 2010, end: 2016
  4. CANDESARTAN [Concomitant]
     Active Substance: CANDESARTAN
  5. PRADAXA [Suspect]
     Active Substance: DABIGATRAN ETEXILATE MESYLATE
     Route: 065
     Dates: start: 2013
  6. BISOCARD [Concomitant]
     Active Substance: BISOPROLOL
  7. CETIRIZINE [Concomitant]
     Active Substance: CETIRIZINE HYDROCHLORIDE
  8. WARAN [Suspect]
     Active Substance: WARFARIN SODIUM
     Route: 065
     Dates: end: 2013
  9. TRAMADOL. [Concomitant]
     Active Substance: TRAMADOL
  10. ALVEDON [Concomitant]
     Active Substance: ACETAMINOPHEN

REACTIONS (1)
  - Skin haemorrhage [Recovered/Resolved]

NARRATIVE: CASE EVENT DATE: 2013
